FAERS Safety Report 8036951-9 (Version None)
Quarter: 2012Q1

REPORT INFORMATION
  Report Type: 
  Country: None (occurrence: None)
  Receive Date: 20120111
  Receipt Date: 20120109
  Transmission Date: 20120608
  Serious: No
  Sender: FDA-Public Use
  Company Number: US-PFIZER INC-2012007338

PATIENT
  Sex: Female

DRUGS (2)
  1. ESTROGENIC SUBSTANCE [Suspect]
     Dosage: UNK
  2. LIPITOR [Suspect]
     Dosage: UNK
     Route: 048

REACTIONS (1)
  - ALOPECIA [None]
